FAERS Safety Report 9516627 (Version 1)
Quarter: 2013Q3

REPORT INFORMATION
  Report Type: Spontaneous
  Country: BR (occurrence: BR)
  Receive Date: 20130911
  Receipt Date: 20130911
  Transmission Date: 20140515
  Serious: Yes (Other)
  Sender: FDA-Public Use
  Company Number: BR-ASTRAZENECA-2013SE67506

PATIENT
  Age: 60 Year
  Sex: Female

DRUGS (8)
  1. SELOZOK [Suspect]
     Indication: ARRHYTHMIA
     Route: 048
     Dates: start: 2012, end: 201308
  2. SELOZOK [Suspect]
     Indication: HYPERTENSION
     Route: 048
     Dates: start: 2012, end: 201308
  3. SELOZOK [Suspect]
     Indication: ARRHYTHMIA
     Route: 048
     Dates: start: 201308
  4. SELOZOK [Suspect]
     Indication: HYPERTENSION
     Route: 048
     Dates: start: 201308
  5. ATACAND COMB [Suspect]
     Indication: HYPERTENSION
     Dosage: DAILY FREQUENCY
     Route: 048
     Dates: start: 201308
  6. INSULIN [Concomitant]
     Indication: DIABETES MELLITUS
  7. GLIFAGE [Concomitant]
     Indication: DIABETES MELLITUS
  8. RIVOTRIL [Concomitant]
     Indication: SEDATIVE THERAPY

REACTIONS (4)
  - Drug ineffective [Recovered/Resolved]
  - Hypertension [Recovered/Resolved]
  - Blood pressure decreased [Recovered/Resolved]
  - Off label use [Not Recovered/Not Resolved]
